FAERS Safety Report 4666059-1 (Version None)
Quarter: 2005Q2

REPORT INFORMATION
  Report Type: 
  Country: None (occurrence: None)
  Receive Date: 20050519
  Receipt Date: 20050509
  Transmission Date: 20051028
  Serious: Yes (Other)
  Sender: FDA-Public Use
  Company Number: NO-ROCHE-404116

PATIENT
  Age: 59 Year
  Sex: Female

DRUGS (1)
  1. LARIAM [Suspect]
     Route: 048
     Dates: start: 20050312, end: 20050402

REACTIONS (5)
  - ATRIOVENTRICULAR BLOCK [None]
  - ATRIOVENTRICULAR BLOCK COMPLETE [None]
  - DIZZINESS [None]
  - DYSPNOEA [None]
  - FATIGUE [None]
